FAERS Safety Report 6541850-5 (Version None)
Quarter: 2010Q1

REPORT INFORMATION
  Report Type: 
  Country: None (occurrence: None)
  Receive Date: 20100119
  Receipt Date: 20100115
  Transmission Date: 20100710
  Serious: Yes (Hospitalization)
  Sender: FDA-Public Use
  Company Number: PHEH2009US15538

PATIENT
  Sex: Male

DRUGS (8)
  1. EXJADE [Suspect]
     Indication: SICKLE CELL ANAEMIA
     Dosage: 1500 MG, QD
     Route: 048
  2. EXJADE [Suspect]
     Indication: IRON OVERLOAD
  3. FOLIC ACID [Concomitant]
  4. REVATIO [Concomitant]
     Dosage: 20 MG, UNK
  5. OXYCONTIN [Concomitant]
     Dosage: 3 TABS Q12 HOURS
  6. OXYCODONE [Concomitant]
     Dosage: 1-2  TABS
  7. ADVAIR [Concomitant]
  8. ALBUTEROL [Concomitant]

REACTIONS (1)
  - SICKLE CELL ANAEMIA WITH CRISIS [None]
